FAERS Safety Report 4775305-5 (Version None)
Quarter: 2005Q3

REPORT INFORMATION
  Report Type: 
  Country: None (occurrence: None)
  Receive Date: 20050920
  Receipt Date: 20050920
  Transmission Date: 20060218
  Serious: Yes (Life-Threatening, Disabling, Other)
  Sender: FDA-Public Use
  Company Number: None

PATIENT
  Age: 57 Year
  Sex: Female
  Weight: 78.4723 kg

DRUGS (4)
  1. LEVAQUIN [Suspect]
     Indication: RESPIRATORY TRACT INFECTION
     Dosage: 1 A DAY FOR 7 DAYS
  2. LEVAQUIN [Suspect]
     Indication: SINUSITIS
     Dosage: 1 A DAY FOR 7 DAYS
  3. LEVAQUIN [Suspect]
     Indication: RESPIRATORY TRACT INFECTION
     Dosage: 1 A DAY FOR 7 DAYS (ONLY FOR 5 DAYS)
  4. LEVAQUIN [Suspect]
     Indication: SINUSITIS
     Dosage: 1 A DAY FOR 7 DAYS (ONLY FOR 5 DAYS)

REACTIONS (15)
  - ACTIVITIES OF DAILY LIVING IMPAIRED [None]
  - ARTHRALGIA [None]
  - ARTHROPATHY [None]
  - ASTHENIA [None]
  - CHEST PAIN [None]
  - DIFFICULTY IN WALKING [None]
  - DYSPNOEA [None]
  - HYPERHIDROSIS [None]
  - JOINT SWELLING [None]
  - MOVEMENT DISORDER [None]
  - PAIN [None]
  - PAIN IN EXTREMITY [None]
  - SKIN SWELLING [None]
  - TENDON DISORDER [None]
  - TENDON RUPTURE [None]
